FAERS Safety Report 4332781-X (Version None)
Quarter: 2004Q1

REPORT INFORMATION
  Report Type: 
  Country: None (occurrence: None)
  Receive Date: 20040330
  Receipt Date: 20040315
  Transmission Date: 20041129
  Serious: Yes (Disabling)
  Sender: FDA-Public Use
  Company Number: 2004-113180-NL

PATIENT
  Age: 33 Year
  Sex: Male

DRUGS (8)
  1. MIRTAZAPINE [Suspect]
     Dosage: 30 MG/90 MG QD/30 MG
     Dates: end: 20040205
  2. MIRTAZAPINE [Suspect]
     Dosage: 30 MG/90 MG QD/30 MG
     Dates: start: 20040206, end: 20040210
  3. MIRTAZAPINE [Suspect]
     Dosage: 30 MG/90 MG QD/30 MG
     Dates: end: 20040211
  4. METFORMIN HYDROCHLORIDE [Suspect]
     Dosage: 500 MG TID
     Dates: start: 20031202
  5. MIXTARD HUMAN 70/30 [Suspect]
     Dosage: 100 DF
     Dates: start: 20040119
  6. NONOXINOL [Concomitant]
  7. CO-CODAMOL [Concomitant]
  8. TEMAZEPAM [Concomitant]

REACTIONS (2)
  - BLOOD INSULIN DECREASED [None]
  - HYPOGLYCAEMIA [None]
